FAERS Safety Report 7967295-9 (Version None)
Quarter: 2011Q4

REPORT INFORMATION
  Report Type: 
  Country: None (occurrence: None)
  Receive Date: 20111209
  Receipt Date: 20111201
  Transmission Date: 20120403
  Serious: Yes (Other)
  Sender: FDA-Public Use
  Company Number: JP-ASTELLAS-2011JP007592

PATIENT
  Sex: Female
  Weight: 52 kg

DRUGS (8)
  1. GARENOXACIN MESYLATE [Suspect]
     Indication: NASOPHARYNGITIS
     Dosage: 2 DF, UNKNOWN/D
     Route: 048
     Dates: start: 20110824, end: 20110827
  2. LOSARTAN POTASSIUM AND HYDROCHLOROTHIAZIDE [Concomitant]
     Dosage: 1 DF, UID/QD
     Route: 048
     Dates: start: 20090915
  3. MAGNESIUM OXIDE [Concomitant]
     Dosage: 0.5 G, BID
     Route: 048
     Dates: start: 20050729
  4. DEPAS [Concomitant]
     Dosage: 0.5 MG, PRN
     Route: 048
     Dates: start: 20070926
  5. CALBLOCK [Concomitant]
     Dosage: 16 MG, UID/QD
     Route: 048
     Dates: start: 20100420
  6. VESICARE [Suspect]
     Indication: HYPERTONIC BLADDER
     Dosage: 5 MG, UID/QD
     Route: 048
     Dates: start: 20091229, end: 20110827
  7. BANAN [Suspect]
     Indication: NASOPHARYNGITIS
     Dosage: 2 DF, UNKNOWN/D
     Route: 048
     Dates: start: 20110818, end: 20110823
  8. OMEPRAZOLE [Concomitant]
     Dosage: 10 MG, UID/QD
     Route: 048
     Dates: start: 20040120

REACTIONS (1)
  - ATRIOVENTRICULAR BLOCK SECOND DEGREE [None]
